FAERS Safety Report 8535295-6 (Version None)
Quarter: 2012Q3

REPORT INFORMATION
  Report Type: 
  Country: None (occurrence: None)
  Receive Date: 20120725
  Receipt Date: 20120717
  Transmission Date: 20120928
  Serious: Yes (Hospitalization, Other)
  Sender: FDA-Public Use
  Company Number: BE-MSD-1207BEL006801

PATIENT

DRUGS (7)
  1. BISOPROLOL FUMARATE [Concomitant]
     Dosage: 2.5 MG, UNK
  2. SODIUM PICOSULFATE [Concomitant]
     Dosage: DROPS
  3. CALCIUM (UNSPECIFIED) (+) VITAMIN D (UNSPECIFIED) [Concomitant]
     Dosage: CALCIUM/VITAMIN D3 SUPPLEMENTS
  4. VENLAFAXINE HYDROCHOLRIDE [Interacting]
     Indication: DEPRESSION
     Dosage: 150 MG, UNK
  5. PANTOPRAZOLE [Concomitant]
     Dosage: 20 MG, UNK
  6. REMERON [Suspect]
     Indication: DEPRESSION
     Dosage: 30 MG, UNK
  7. LEVOTHYROXINE SODIUM [Concomitant]
     Dosage: 125 MICROGRAM, UNK

REACTIONS (3)
  - METABOLIC ENCEPHALOPATHY [None]
  - SEROTONIN SYNDROME [None]
  - URINARY TRACT INFECTION [None]
